FAERS Safety Report 8620000-5 (Version None)
Quarter: 2012Q3

REPORT INFORMATION
  Report Type: 
  Country: None (occurrence: None)
  Receive Date: 20120824
  Receipt Date: 20120817
  Transmission Date: 20120928
  Serious: Yes (Other)
  Sender: FDA-Public Use
  Company Number: PHEH2012US014221

PATIENT
  Sex: Female
  Weight: 68.675 kg

DRUGS (14)
  1. VITAMIN B-12 [Concomitant]
     Dosage: 1000 UG, QD
     Route: 060
  2. LOMOTIL [Concomitant]
     Indication: DIARRHOEA
     Dosage: 0.025-2.5 MG Q6H, PRN
     Route: 048
  3. DOXEPIN HYDROCHLORIDE [Concomitant]
     Dosage: 2 DF, QD
     Route: 048
  4. EFFEXOR XR [Concomitant]
     Dosage: 25 MG, QD
     Route: 048
  5. GLUCOSAMINE COMPLEX [Concomitant]
     Dosage: 1 DF, BID
     Route: 048
  6. DOXEPIN HYDROCHLORIDE [Concomitant]
     Dosage: 2 DF, QD
     Route: 048
  7. IRON DEXTRAN [Concomitant]
     Dosage: 50 MG/ML, MAY NEED 3-4 A YEAR
  8. HYDROCHLOROTHIAZIDE [Concomitant]
     Indication: HYPERTENSION
     Dosage: 12.5 MG, QD
     Route: 048
  9. LUNESTA [Concomitant]
     Dosage: 2 MG, UNK
  10. NAPROXEN [Concomitant]
     Indication: PAIN
     Dosage: 500 MG, PRN, BID
     Route: 048
  11. VITAMIN D [Concomitant]
     Dosage: 1000 IU, UNK
  12. MULTI-VITAMINS [Concomitant]
     Dosage: 1 DF, QD
     Route: 048
  13. GILENYA [Suspect]
     Dosage: 0.5 MG, QD
     Route: 048
     Dates: start: 20120216, end: 20120717
  14. NEXIUM [Concomitant]
     Dosage: 40 MG, BID
     Route: 048

REACTIONS (11)
  - MYOCARDIAL ISCHAEMIA [None]
  - MYOCARDIAL INFARCTION [None]
  - ANGINA PECTORIS [None]
  - CORONARY ARTERY STENOSIS [None]
  - ELECTROCARDIOGRAM T WAVE INVERSION [None]
  - DYSPNOEA [None]
  - VENTRICULAR HYPOKINESIA [None]
  - LIPIDS ABNORMAL [None]
  - ACUTE CORONARY SYNDROME [None]
  - ELECTROCARDIOGRAM T WAVE AMPLITUDE DECREASED [None]
  - EJECTION FRACTION DECREASED [None]
